FAERS Safety Report 6623765-7 (Version None)
Quarter: 2010Q1

REPORT INFORMATION
  Report Type: 
  Country: None (occurrence: None)
  Receive Date: 20100310
  Receipt Date: 20091119
  Transmission Date: 20100710
  Serious: No
  Sender: FDA-Public Use
  Company Number: US-BIOGENIDEC-2009BI037676

PATIENT
  Age: 76 Year
  Sex: Female

DRUGS (3)
  1. AVONEX [Suspect]
     Indication: MULTIPLE SCLEROSIS
     Route: 030
     Dates: start: 20060101
  2. BENICAR [Concomitant]
     Indication: HYPERTENSION
  3. OMEPRAZOLE [Concomitant]
     Indication: HIATUS HERNIA

REACTIONS (3)
  - INFLUENZA LIKE ILLNESS [None]
  - ORTHOSTATIC HYPOTENSION [None]
  - PALPITATIONS [None]
